FAERS Safety Report 14568296 (Version 4)
Quarter: 2018Q3

REPORT INFORMATION
  Report Type: Report from Study
  Country: US (occurrence: US)
  Receive Date: 20180223
  Receipt Date: 20180718
  Transmission Date: 20181010
  Serious: Yes (Other)
  Sender: FDA-Public Use
  Company Number: PHEH2018US007342

PATIENT
  Sex: Male

DRUGS (1)
  1. ILARIS [Suspect]
     Active Substance: CANAKINUMAB
     Indication: CRYOPYRIN ASSOCIATED PERIODIC SYNDROME
     Dosage: 32 MG, EVERY 8 WEEKS
     Route: 058

REACTIONS (6)
  - Cryopyrin associated periodic syndrome [Unknown]
  - Gene mutation [Unknown]
  - Pyrexia [Unknown]
  - Fatigue [Unknown]
  - Nasopharyngitis [Unknown]
  - Condition aggravated [Unknown]
